FAERS Safety Report 21633033 (Version 2)
Quarter: 2022Q4

REPORT INFORMATION
  Report Type: Report from Study
  Country: US (occurrence: None)
  Receive Date: 20221123
  Receipt Date: 20221230
  Transmission Date: 20230113
  Serious: Yes (Hospitalization)
  Sender: FDA-Public Use
  Company Number: US-Ultragenyx Pharmaceutical Inc.-US-UGNX-22-00845

PATIENT
  Sex: Male

DRUGS (2)
  1. DOJOLVI [Suspect]
     Active Substance: TRIHEPTANOIN
     Indication: Fatty acid oxidation disorder
     Route: 048
  2. MONOGEN FORMULA WITH MCT OIL [Concomitant]
     Indication: Product used for unknown indication

REACTIONS (3)
  - Rhabdomyolysis [Not Recovered/Not Resolved]
  - Malnutrition [Not Recovered/Not Resolved]
  - Intentional product misuse [Not Recovered/Not Resolved]
